FAERS Safety Report 25709912 (Version 1)
Quarter: 2025Q3

REPORT INFORMATION
  Report Type: Spontaneous
  Country: US (occurrence: US)
  Receive Date: 20250821
  Receipt Date: 20250821
  Transmission Date: 20251020
  Serious: Yes (Other)
  Sender: MYLAN
  Company Number: US-MYLANLABS-2025M1069355

PATIENT
  Sex: Female

DRUGS (8)
  1. METHOTREXATE [Suspect]
     Active Substance: METHOTREXATE
     Indication: Cutaneous T-cell lymphoma stage I
  2. METHOTREXATE [Suspect]
     Active Substance: METHOTREXATE
     Route: 065
  3. METHOTREXATE [Suspect]
     Active Substance: METHOTREXATE
     Route: 065
  4. METHOTREXATE [Suspect]
     Active Substance: METHOTREXATE
  5. BEXAROTENE [Suspect]
     Active Substance: BEXAROTENE
     Indication: Cutaneous T-cell lymphoma stage I
  6. BEXAROTENE [Suspect]
     Active Substance: BEXAROTENE
     Route: 065
  7. BEXAROTENE [Suspect]
     Active Substance: BEXAROTENE
     Route: 065
  8. BEXAROTENE [Suspect]
     Active Substance: BEXAROTENE

REACTIONS (1)
  - Drug ineffective [Unknown]
